FAERS Safety Report 14767017 (Version 1)
Quarter: 2018Q2

REPORT INFORMATION
  Report Type: Spontaneous
  Country: US (occurrence: US)
  Receive Date: 20180417
  Receipt Date: 20180417
  Transmission Date: 20180711
  Serious: No
  Sender: FDA-Public Use
  Company Number: US-BAUSCH-BL-2017-019236

PATIENT
  Age: 46 Year
  Sex: Female

DRUGS (2)
  1. OSMOPREP [Suspect]
     Active Substance: SODIUM PHOSPHATE, DIBASIC, ANHYDROUS\SODIUM PHOSPHATE, MONOBASIC, MONOHYDRATE
     Indication: COLONOSCOPY
  2. OSMOPREP [Suspect]
     Active Substance: SODIUM PHOSPHATE, DIBASIC, ANHYDROUS\SODIUM PHOSPHATE, MONOBASIC, MONOHYDRATE
     Indication: ENDOSCOPY
     Dosage: 32 TABLETS TOTAL IN TWO DOSES
     Route: 048
     Dates: start: 20170608, end: 20170608

REACTIONS (1)
  - Reactive gastropathy [Unknown]

NARRATIVE: CASE EVENT DATE: 20170609
